FAERS Safety Report 6286899-5 (Version None)
Quarter: 2009Q3

REPORT INFORMATION
  Report Type: 
  Country: None (occurrence: None)
  Receive Date: 20090728
  Receipt Date: 20090723
  Transmission Date: 20100115
  Serious: No
  Sender: FDA-Public Use
  Company Number: US-B.I. PHARMACEUTICALS,INC./RIDGEFIELD-2009-BP-08743BP

PATIENT
  Sex: Female

DRUGS (5)
  1. SPIRIVA [Suspect]
     Indication: CHRONIC OBSTRUCTIVE PULMONARY DISEASE
     Dosage: 18 MCG
     Route: 055
     Dates: start: 20090601
  2. CLONIDINE [Concomitant]
     Indication: HYPERTENSION
     Dates: start: 20090101
  3. COZAAR [Concomitant]
     Indication: HYPERTENSION
     Dates: start: 20090301
  4. COREG [Concomitant]
     Indication: HYPERTENSION
     Dates: start: 20090301
  5. NORVASC [Concomitant]
     Indication: HYPERTENSION
     Dates: start: 20090301

REACTIONS (2)
  - BLOOD CREATININE INCREASED [None]
  - BLOOD UREA INCREASED [None]
